FAERS Safety Report 21937335 (Version 1)
Quarter: 2023Q1

REPORT INFORMATION
  Report Type: Spontaneous
  Country: US (occurrence: None)
  Receive Date: 20230201
  Receipt Date: 20230201
  Transmission Date: 20230418
  Serious: No
  Sender: FDA-Public Use
  Company Number: None

PATIENT

DRUGS (3)
  1. XTANDI [Suspect]
     Active Substance: ENZALUTAMIDE
  2. BIKTARVY [Suspect]
     Active Substance: BICTEGRAVIR SODIUM\EMTRICITABINE\TENOFOVIR ALAFENAMIDE FUMARATE
  3. DEVICE [Suspect]
     Active Substance: DEVICE

REACTIONS (4)
  - Labelled drug-drug interaction medication error [None]
  - Contraindicated product prescribed [None]
  - Contraindicated product administered [None]
  - Device computer issue [None]
